FAERS Safety Report 18341800 (Version 1)
Quarter: 2020Q4

REPORT INFORMATION
  Report Type: Spontaneous
  Country: US (occurrence: US)
  Receive Date: 20201005
  Receipt Date: 20201005
  Transmission Date: 20210113
  Serious: No
  Sender: FDA-Public Use
  Company Number: US-TEVA-2020-US-1828797

PATIENT
  Sex: Male

DRUGS (1)
  1. AJOVY [Suspect]
     Active Substance: FREMANEZUMAB-VFRM
     Dosage: 225/1.5 MG/ML
     Route: 065

REACTIONS (6)
  - Incorrect route of product administration [Unknown]
  - Injection site pain [Unknown]
  - Dyskinesia [Unknown]
  - Wrong technique in product usage process [Unknown]
  - Incorrect dose administered [Unknown]
  - Accidental exposure to product [Unknown]
